FAERS Safety Report 18440131 (Version 1)
Quarter: 2020Q4

REPORT INFORMATION
  Report Type: Other
  Country: CA (occurrence: CA)
  Receive Date: 20201029
  Receipt Date: 20201029
  Transmission Date: 20210114
  Serious: Yes (Hospitalization, Other)
  Sender: FDA-Public Use
  Company Number: CA-CELLTRION INC.-2020CA029548

PATIENT

DRUGS (20)
  1. RITUXIMAB (UNKNOWN) [Suspect]
     Active Substance: RITUXIMAB
     Indication: POLYMYOSITIS
     Dosage: UNK
     Route: 042
  2. DIPHENHYDRAMINE HYDROCHLORIDE. [Concomitant]
     Active Substance: DIPHENHYDRAMINE HYDROCHLORIDE
     Indication: PREMEDICATION
     Dosage: 50 MILLIGRAM
     Route: 048
  3. GLIBENCLAMIDE [Concomitant]
     Active Substance: GLYBURIDE
     Route: 065
  4. MUPIROCIN. [Concomitant]
     Active Substance: MUPIROCIN
     Dosage: 2 PERCENT
     Route: 065
  5. PROGRAF [Concomitant]
     Active Substance: TACROLIMUS
  6. CARBOCAL [Concomitant]
     Active Substance: CALCIUM CARBONATE
  7. OXAZEPAM. [Concomitant]
     Active Substance: OXAZEPAM
     Dosage: UNK, AS REQUIRED
     Route: 065
  8. PANTOPRAZOLE [Concomitant]
     Active Substance: PANTOPRAZOLE
  9. ZOLEDRONIC ACID [Concomitant]
     Active Substance: ZOLEDRONIC ACID
  10. ACETAMINOPHEN. [Concomitant]
     Active Substance: ACETAMINOPHEN
     Indication: PREMEDICATION
     Dosage: 650 MILLIGRAM
     Route: 065
  11. ARISTOCORT [TRIAMCINOLONE ACETONIDE] [Concomitant]
     Active Substance: TRIAMCINOLONE ACETONIDE
     Dosage: UNK, AS REQUIRED
     Route: 065
  12. RITUXIMAB (UNKNOWN) [Suspect]
     Active Substance: RITUXIMAB
     Dosage: 1000 MILLIGRAM
     Route: 042
  13. APO-HYDRO [Concomitant]
     Active Substance: HYDROCHLOROTHIAZIDE
  14. ADVAIR HFA [Concomitant]
     Active Substance: FLUTICASONE PROPIONATE\SALMETEROL XINAFOATE
  15. METFORMIN [Concomitant]
     Active Substance: METFORMIN HYDROCHLORIDE
  16. SALBUTAMOL [Concomitant]
     Active Substance: ALBUTEROL
     Dosage: UNK, AS REQUIRED
     Route: 065
  17. LORATADINE. [Concomitant]
     Active Substance: LORATADINE
  18. METHYLPREDNISOLONE. [Concomitant]
     Active Substance: METHYLPREDNISOLONE
     Indication: PREMEDICATION
     Dosage: 100 MILLIGRAM
     Route: 042
  19. PREDNISONE. [Concomitant]
     Active Substance: PREDNISONE
  20. CITALOPRAM [Concomitant]
     Active Substance: CITALOPRAM HYDROBROMIDE

REACTIONS (11)
  - Lung disorder [Not Recovered/Not Resolved]
  - Intentional product use issue [Not Recovered/Not Resolved]
  - Off label use [Not Recovered/Not Resolved]
  - Pneumonia [Not Recovered/Not Resolved]
  - Respiratory rate increased [Not Recovered/Not Resolved]
  - Blood pressure increased [Not Recovered/Not Resolved]
  - Back pain [Not Recovered/Not Resolved]
  - Mental disorder [Not Recovered/Not Resolved]
  - Sputum discoloured [Not Recovered/Not Resolved]
  - Burning sensation [Not Recovered/Not Resolved]
  - Dyspnoea [Not Recovered/Not Resolved]
